FAERS Safety Report 7370837-8 (Version None)
Quarter: 2011Q1

REPORT INFORMATION
  Report Type: 
  Country: None (occurrence: None)
  Receive Date: 20110324
  Receipt Date: 20110314
  Transmission Date: 20110831
  Serious: No
  Sender: FDA-Public Use
  Company Number: US-BIOGENIDEC-2010BI039727

PATIENT
  Sex: Female

DRUGS (1)
  1. TYSABRI [Suspect]
     Indication: MULTIPLE SCLEROSIS
     Route: 042
     Dates: start: 20090504

REACTIONS (8)
  - INSOMNIA [None]
  - INTERVERTEBRAL DISC DEGENERATION [None]
  - DRUG INEFFECTIVE [None]
  - FALL [None]
  - SCIATICA [None]
  - BACK PAIN [None]
  - VISUAL IMPAIRMENT [None]
  - MEMORY IMPAIRMENT [None]
